FAERS Safety Report 20608655 (Version 3)
Quarter: 2022Q2

REPORT INFORMATION
  Report Type: Spontaneous
  Country: US (occurrence: US)
  Receive Date: 20220317
  Receipt Date: 20220401
  Transmission Date: 20220721
  Serious: No
  Sender: FDA-Public Use
  Company Number: US-ORGANON-O2203USA001494

PATIENT
  Age: 33 Year
  Sex: Female
  Weight: 115.65 kg

DRUGS (1)
  1. NEXPLANON [Suspect]
     Active Substance: ETONOGESTREL
     Indication: Contraception
     Dosage: 1 IMPLANT 68 MILLIGRAM
     Route: 059
     Dates: start: 20201026, end: 20220311

REACTIONS (6)
  - Fall [Recovered/Resolved]
  - Heavy menstrual bleeding [Recovered/Resolved]
  - Device kink [Recovered/Resolved]
  - Fatigue [Unknown]
  - Menstruation irregular [Unknown]
  - Emotional disorder [Unknown]

NARRATIVE: CASE EVENT DATE: 20220201
